FAERS Safety Report 14432437 (Version 7)
Quarter: 2020Q1

REPORT INFORMATION
  Report Type: Spontaneous
  Country: DE (occurrence: DE)
  Receive Date: 20180124
  Receipt Date: 20200204
  Transmission Date: 20200409
  Serious: Yes (Hospitalization, Other)
  Sender: FDA-Public Use
  Company Number: PHHY2017DE199628

PATIENT
  Sex: Female
  Weight: 70 kg

DRUGS (17)
  1. SALBUTAMOL [Suspect]
     Active Substance: ALBUTEROL
     Dosage: 5 ML, PRN (BEFORE LEVOFLOXACIN INHALATION)
     Route: 055
  2. L-THYROX HEXAL 100MCG TABLETS [Suspect]
     Active Substance: LEVOTHYROXINE SODIUM
     Indication: PRODUCT USED FOR UNKNOWN INDICATION
     Dosage: 100 UG, UNK
     Route: 048
  3. AIRFLUSAL FORSPIRO [Suspect]
     Active Substance: FLUTICASONE PROPIONATE\SALMETEROL XINAFOATE
     Indication: PRODUCT USED FOR UNKNOWN INDICATION
     Dosage: UNK
     Route: 055
     Dates: start: 20170715
  4. AIRFLUSAL FORSPIRO [Suspect]
     Active Substance: FLUTICASONE PROPIONATE\SALMETEROL XINAFOATE
     Dosage: 1 OT, QD
     Route: 065
  5. FLUTICASONE. [Concomitant]
     Active Substance: FLUTICASONE
     Indication: PRODUCT USED FOR UNKNOWN INDICATION
     Dosage: 2 OT, QD
     Route: 045
  6. AIRFLUSAL FORSPIRO [Suspect]
     Active Substance: FLUTICASONE PROPIONATE\SALMETEROL XINAFOATE
     Dosage: 2 DF, QD
     Route: 065
  7. HUMIRA [Suspect]
     Active Substance: ADALIMUMAB
     Dosage: 1 DF, Q4W
     Route: 058
     Dates: start: 2018, end: 20180218
  8. HUMIRA [Suspect]
     Active Substance: ADALIMUMAB
     Dosage: UNK
     Route: 058
     Dates: start: 2019
  9. AMJEVITA [Suspect]
     Active Substance: ADALIMUMAB-ATTO
     Indication: PSORIASIS
     Dosage: UNK
     Route: 065
  10. HUMIRA [Suspect]
     Active Substance: ADALIMUMAB
     Indication: PSORIASIS
     Dosage: 40 MG, Q2W
     Route: 058
     Dates: start: 20170629
  11. SALBUTAMOL [Suspect]
     Active Substance: ALBUTEROL
     Indication: PRODUCT USED FOR UNKNOWN INDICATION
     Dosage: UNK
     Route: 055
  12. LEVOTHYROXINE. [Concomitant]
     Active Substance: LEVOTHYROXINE
     Indication: PRODUCT USED FOR UNKNOWN INDICATION
     Dosage: 125 MG, QD
     Route: 065
  13. FLUTICASON [Concomitant]
     Active Substance: FLUTICASONE
     Indication: PRODUCT USED FOR UNKNOWN INDICATION
     Dosage: 4 DF, QD (2 DF)
     Route: 045
  14. EMSER SOLE [Concomitant]
     Indication: PRODUCT USED FOR UNKNOWN INDICATION
     Dosage: 5 ML (AS REQUIRED 3 TIMES A DAY)
     Route: 065
  15. VIANI [Concomitant]
     Active Substance: FLUTICASONE PROPIONATE\SALMETEROL XINAFOATE
     Indication: PRODUCT USED FOR UNKNOWN INDICATION
     Dosage: 2 OT, QD (50/100 UG FOLLOWING DISCUSSION)
     Route: 055
  16. AMJEVITA [Suspect]
     Active Substance: ADALIMUMAB-ATTO
     Dosage: 40 MG
     Route: 065
     Dates: start: 20190626
  17. L-THYROXIN [Concomitant]
     Active Substance: LEVOTHYROXINE SODIUM
     Indication: PRODUCT USED FOR UNKNOWN INDICATION
     Dosage: 1 OT, QD
     Route: 048

REACTIONS (42)
  - Traumatic lung injury [Unknown]
  - Increased upper airway secretion [Unknown]
  - Breath sounds abnormal [Unknown]
  - Staphylococcal infection [Unknown]
  - Tracheobronchitis [Unknown]
  - Bronchitis [Unknown]
  - Hyperthyroidism [Unknown]
  - Haemoptysis [Unknown]
  - Conjunctivitis allergic [Unknown]
  - Haemoptysis [Unknown]
  - Thyroid atrophy [Unknown]
  - Tracheobronchitis bacterial [Recovered/Resolved]
  - Bronchitis bacterial [Unknown]
  - Hiatus hernia [Recovered/Resolved]
  - Infection susceptibility increased [Unknown]
  - Drug intolerance [Unknown]
  - Respiratory tract infection [Recovered/Resolved]
  - Immunodeficiency [Not Recovered/Not Resolved]
  - Dyspnoea [Unknown]
  - Hilar lymphadenopathy [Unknown]
  - Bronchiolitis [Unknown]
  - Obstructive airways disorder [Unknown]
  - Cystitis noninfective [Unknown]
  - Lung disorder [Not Recovered/Not Resolved]
  - Haemophilus infection [Recovering/Resolving]
  - Bronchiectasis [Unknown]
  - Bronchial obstruction [Unknown]
  - Haemoptysis [Not Recovered/Not Resolved]
  - Dyspnoea [Unknown]
  - Osteomyelitis [Recovered/Resolved]
  - Inflammation [Unknown]
  - Pneumonia [Recovered/Resolved]
  - Mucosal haemorrhage [Unknown]
  - Pneumonia [Unknown]
  - Pulmonary fibrosis [Not Recovered/Not Resolved]
  - Magnetic resonance imaging thoracic abnormal [Unknown]
  - Pulmonary haemorrhage [Unknown]
  - Pulmonary oedema [Unknown]
  - Blood immunoglobulin E increased [Unknown]
  - Chronic sinusitis [Unknown]
  - Bronchial wall thickening [Unknown]
  - Asthma [Unknown]

NARRATIVE: CASE EVENT DATE: 2017
